FAERS Safety Report 15842397 (Version 1)
Quarter: 2019Q1

REPORT INFORMATION
  Report Type: Spontaneous
  Country: US (occurrence: US)
  Receive Date: 20190118
  Receipt Date: 20190118
  Transmission Date: 20190417
  Serious: No
  Sender: FDA-Public Use
  Company Number: US-SA-2019SA012167

PATIENT
  Age: 64 Year
  Sex: Male

DRUGS (1)
  1. AUBAGIO [Suspect]
     Active Substance: TERIFLUNOMIDE
     Indication: MULTIPLE SCLEROSIS
     Dosage: 14 MG; CAP
     Route: 048
     Dates: start: 20170712

REACTIONS (9)
  - Fall [Not Recovered/Not Resolved]
  - Contusion [Not Recovered/Not Resolved]
  - Injury [Not Recovered/Not Resolved]
  - Band sensation [Unknown]
  - Anxiety [Unknown]
  - Joint lock [Unknown]
  - Wheelchair user [Unknown]
  - Abdominal pain [Unknown]
  - Product dose omission [Not Recovered/Not Resolved]

NARRATIVE: CASE EVENT DATE: 201901
